FAERS Safety Report 4914112-7 (Version None)
Quarter: 2006Q1

REPORT INFORMATION
  Report Type: 
  Country: None (occurrence: None)
  Receive Date: 20060213
  Receipt Date: 20050420
  Transmission Date: 20060701
  Serious: Yes (Hospitalization)
  Sender: FDA-Public Use
  Company Number: DSK-2005-03959

PATIENT
  Age: 17 Month
  Sex: Female

DRUGS (3)
  1. TARIVID OTIC SOLUTION [Suspect]
     Indication: EAR INFECTION
     Dosage: SPRAY
     Route: 001
     Dates: start: 20050321, end: 20050321
  2. AUGMENTIN '125' [Suspect]
     Indication: EAR INFECTION
     Dosage: EVERY DAY ORAL SUSPENSION
     Route: 048
     Dates: start: 20050321, end: 20050323
  3. ROCEPHINE (CEFTRIAXONE) (CEFTRIAXONE) [Concomitant]

REACTIONS (2)
  - PHARYNGITIS [None]
  - RASH [None]
